FAERS Safety Report 5235443-X (Version None)
Quarter: 2007Q1

REPORT INFORMATION
  Report Type: 
  Country: None (occurrence: None)
  Receive Date: 20070208
  Receipt Date: 20070208
  Transmission Date: 20070707
  Serious: Yes (Hospitalization)
  Sender: FDA-Public Use
  Company Number: None

PATIENT
  Sex: Male
  Weight: 102.5 kg

DRUGS (1)
  1. MYLOTARG [Suspect]
     Indication: ACUTE MYELOID LEUKAEMIA
     Dosage: 11 MG

REACTIONS (6)
  - CONFUSIONAL STATE [None]
  - DISORIENTATION [None]
  - HEADACHE [None]
  - HYPERHIDROSIS [None]
  - HYPOGLYCAEMIA [None]
  - NEUTROPENIA [None]
